FAERS Safety Report 18285856 (Version 1)
Quarter: 2020Q3

REPORT INFORMATION
  Report Type: Spontaneous
  Country: GB (occurrence: GB)
  Receive Date: 20200919
  Receipt Date: 20200919
  Transmission Date: 20201103
  Serious: Yes (Other)
  Sender: FDA-Public Use
  Company Number: GB-TEVA-2020-GB-1828287

PATIENT
  Age: 52 Year
  Sex: Female
  Weight: 95 kg

DRUGS (1)
  1. TOPIRAMATE. [Suspect]
     Active Substance: TOPIRAMATE
     Indication: MIGRAINE WITH AURA
     Dosage: 25MG
     Route: 048
     Dates: start: 20200616, end: 20200807

REACTIONS (11)
  - Paranoia [Recovering/Resolving]
  - Suicidal ideation [Recovering/Resolving]
  - Depressed mood [Recovering/Resolving]
  - Dizziness [Recovering/Resolving]
  - Crying [Unknown]
  - Feeling abnormal [Unknown]
  - Vertigo [Recovering/Resolving]
  - Irritability [Unknown]
  - Nervousness [Unknown]
  - Disorientation [Recovering/Resolving]
  - Feeling guilty [Unknown]

NARRATIVE: CASE EVENT DATE: 20200701
